FAERS Safety Report 6024454-2 (Version None)
Quarter: 2008Q4

REPORT INFORMATION
  Report Type: 
  Country: None (occurrence: None)
  Receive Date: 20081229
  Receipt Date: 20081229
  Transmission Date: 20090506
  Serious: Yes (Hospitalization)
  Sender: FDA-Public Use
  Company Number: None

PATIENT
  Age: 51 Year
  Sex: Male
  Weight: 38 kg

DRUGS (2)
  1. CIPRO [Suspect]
     Indication: PROSTATITIS
     Dosage: 750 BID PO
     Route: 048
     Dates: start: 20081224, end: 20081226
  2. LIPITOR [Concomitant]

REACTIONS (2)
  - HEPATITIS [None]
  - PANCREATITIS [None]
